FAERS Safety Report 13088149 (Version 1)
Quarter: 2017Q1

REPORT INFORMATION
  Report Type: Spontaneous
  Country: US (occurrence: US)
  Receive Date: 20170104
  Receipt Date: 20170104
  Transmission Date: 20170428
  Serious: Yes (Disabling)
  Sender: FDA-Public Use
  Company Number: None

PATIENT
  Age: 67 Year
  Sex: Male
  Weight: 168.7 kg

DRUGS (12)
  1. BUPROPION HYDROCHLORIDE XL [Concomitant]
     Active Substance: BUPROPION HYDROCHLORIDE
  2. CELECOXIB. [Concomitant]
     Active Substance: CELECOXIB
  3. DESVENLAFAXINE SUCCINATE [Concomitant]
     Active Substance: DESVENLAFAXINE SUCCINATE
  4. AMLODIPINE-ATROVASTATIN [Concomitant]
  5. TRAMADOL HYDROCHLORIDE. [Concomitant]
     Active Substance: TRAMADOL HYDROCHLORIDE
  6. ZOLEDRONIC ACID [Concomitant]
     Active Substance: ZOLEDRONIC ACID
  7. RECLAST [Suspect]
     Active Substance: ZOLEDRONIC ACID
     Indication: OSTEOPOROSIS
     Dosage: INTRAVENOUS YEARLY?INTRAVENOUS (NOT OTHERWISE SPECIFIED)
     Route: 042
  8. ASPRIN [Concomitant]
     Active Substance: ASPIRIN
  9. CALCIUM [Concomitant]
     Active Substance: CALCIUM
  10. HYDROCODONE-ACETAMINOPHEN [Concomitant]
     Active Substance: ACETAMINOPHEN\HYDROCODONE
  11. CARBIDOPA-LEVODOPA [Concomitant]
     Active Substance: CARBIDOPA\LEVODOPA
  12. CPAP MACHINE [Concomitant]

REACTIONS (11)
  - Middle insomnia [None]
  - Hallucination, auditory [None]
  - Pain [None]
  - Balance disorder [None]
  - Diarrhoea [None]
  - Musculoskeletal disorder [None]
  - Dysphemia [None]
  - Grunting [None]
  - Fracture [None]
  - Urinary incontinence [None]
  - Arthralgia [None]

NARRATIVE: CASE EVENT DATE: 20160615
